FAERS Safety Report 24846031 (Version 2)
Quarter: 2025Q2

REPORT INFORMATION
  Report Type: Spontaneous
  Country: US (occurrence: US)
  Receive Date: 20250115
  Receipt Date: 20250423
  Transmission Date: 20250717
  Serious: No
  Sender: NOVARTIS
  Company Number: US-002147023-NVSC2025US006676

PATIENT
  Sex: Male

DRUGS (1)
  1. PROMACTA [Suspect]
     Active Substance: ELTROMBOPAG OLAMINE
     Indication: Thrombocytosis
     Dosage: 75 MG, QD
     Route: 048
     Dates: start: 202412

REACTIONS (4)
  - Dry mouth [Unknown]
  - Dry skin [Unknown]
  - Memory impairment [Unknown]
  - Fatigue [Unknown]
